FAERS Safety Report 9574988 (Version 2)
Quarter: 2013Q4

REPORT INFORMATION
  Report Type: Spontaneous
  Country: US (occurrence: US)
  Receive Date: 20131001
  Receipt Date: 20131121
  Transmission Date: 20140711
  Serious: Yes (Other)
  Sender: FDA-Public Use
  Company Number: US-ASTRAZENECA-2013SE71678

PATIENT
  Age: 61 Year
  Sex: Female
  Weight: 79.4 kg

DRUGS (9)
  1. ENTOCORT EC [Suspect]
     Indication: COLITIS
     Route: 048
     Dates: start: 2004
  2. ENTOCORT EC [Suspect]
     Indication: COLITIS
     Dosage: GENERIC BY MYLAN
     Route: 048
     Dates: start: 2013
  3. ENTOCORT EC [Suspect]
     Indication: COLITIS
     Route: 048
  4. ENTOCORT EC [Suspect]
     Indication: COLITIS
     Dosage: GENERIC BY MYLAN, 2 CAPSULES
     Route: 048
  5. VITAMIN D [Concomitant]
     Route: 048
  6. DIPHENOXYLATE/ATROP [Concomitant]
     Indication: ILL-DEFINED DISORDER
     Dosage: PRN
  7. FLORAJEN [Concomitant]
     Indication: DYSBACTERIOSIS
  8. METAMUCIL [Concomitant]
     Dates: start: 2008
  9. CALCIUM WITH VITAMIN D [Concomitant]
     Dosage: 630MG/500 IU

REACTIONS (14)
  - Abscess intestinal [Unknown]
  - Diverticulum [Unknown]
  - Infection [Unknown]
  - Abscess [Unknown]
  - Flatulence [Unknown]
  - Colitis [Unknown]
  - Cyst [Unknown]
  - Vitamin D decreased [Unknown]
  - Polyp [Unknown]
  - Rash [Unknown]
  - Rash pruritic [Unknown]
  - Rash [Unknown]
  - Intentional drug misuse [Unknown]
  - Drug dose omission [Unknown]
